FAERS Safety Report 10332238 (Version 1)
Quarter: 2014Q3

REPORT INFORMATION
  Report Type: Spontaneous
  Country: IT (occurrence: IT)
  Receive Date: 20140722
  Receipt Date: 20140722
  Transmission Date: 20150326
  Serious: Yes (Other)
  Sender: FDA-Public Use
  Company Number: IT-TEVA-494413ISR

PATIENT
  Sex: Female

DRUGS (1)
  1. RISPERIDONE TEVA 3 MG [Suspect]
     Active Substance: RISPERIDONE
     Route: 048

REACTIONS (4)
  - Suicidal ideation [Unknown]
  - Psychotic disorder [Unknown]
  - Drug ineffective [Unknown]
  - Product substitution issue [Unknown]
